FAERS Safety Report 14174884 (Version 1)
Quarter: 2017Q4

REPORT INFORMATION
  Report Type: Spontaneous
  Country: TR (occurrence: TR)
  Receive Date: 20171109
  Receipt Date: 20171109
  Transmission Date: 20180321
  Serious: Yes (Death, Hospitalization)
  Sender: FDA-Public Use
  Company Number: TR-ELI_LILLY_AND_COMPANY-TR201711003175

PATIENT
  Age: 75 Year
  Sex: Female

DRUGS (3)
  1. FORSTEO [Suspect]
     Active Substance: TERIPARATIDE
     Indication: OSTEOPOROSIS
  2. SINORETIK FORT [Concomitant]
     Indication: HYPERTENSION
  3. FORSTEO [Suspect]
     Active Substance: TERIPARATIDE
     Indication: FRACTURE
     Dosage: UNK, UNKNOWN
     Route: 065
     Dates: start: 201607, end: 20170824

REACTIONS (8)
  - Cough [Unknown]
  - Cardiac arrest [Fatal]
  - Fall [Unknown]
  - Epistaxis [Unknown]
  - Dyspnoea [Unknown]
  - Electrolyte imbalance [Unknown]
  - Feeling abnormal [Unknown]
  - Oedema [Unknown]

NARRATIVE: CASE EVENT DATE: 20170824
